FAERS Safety Report 18582868 (Version 1)
Quarter: 2020Q4

REPORT INFORMATION
  Report Type: Spontaneous
  Country: PH (occurrence: PH)
  Receive Date: 20201205
  Receipt Date: 20201205
  Transmission Date: 20210114
  Serious: Yes (Death, Other)
  Sender: FDA-Public Use
  Company Number: NVSC2019PH006104

PATIENT
  Age: 34 Year
  Sex: Male

DRUGS (1)
  1. GLIVEC [Suspect]
     Active Substance: IMATINIB MESYLATE
     Indication: CHRONIC MYELOID LEUKAEMIA
     Dosage: 800 MG
     Route: 065

REACTIONS (21)
  - Blood sodium decreased [Unknown]
  - Haemoglobin decreased [Unknown]
  - Gallbladder disorder [Unknown]
  - Diarrhoea [Not Recovered/Not Resolved]
  - Flatulence [Unknown]
  - Blood creatinine increased [Fatal]
  - Multiple organ dysfunction syndrome [Fatal]
  - Hydronephrosis [Unknown]
  - Hepatomegaly [Unknown]
  - Splenomegaly [Unknown]
  - Red blood cell count decreased [Unknown]
  - Chronic myeloid leukaemia transformation [Fatal]
  - Kidney enlargement [Unknown]
  - Urine output decreased [Fatal]
  - Blood potassium decreased [Unknown]
  - White blood cell count increased [Unknown]
  - Nephrolithiasis [Unknown]
  - Pyrexia [Unknown]
  - Renal failure [Fatal]
  - Haematocrit decreased [Unknown]
  - Platelet count decreased [Unknown]

NARRATIVE: CASE EVENT DATE: 20190929
